FAERS Safety Report 19314546 (Version 1)
Quarter: 2021Q2

REPORT INFORMATION
  Report Type: Spontaneous
  Country: US (occurrence: US)
  Receive Date: 20210527
  Receipt Date: 20210527
  Transmission Date: 20210717
  Serious: No
  Sender: FDA-Public Use
  Company Number: US-PFIZER INC-2021330092

PATIENT
  Age: 69 Year
  Sex: Male

DRUGS (2)
  1. SULFASALAZINE. [Suspect]
     Active Substance: SULFASALAZINE
     Dosage: SWITCHED TO TAKING THREE A DAY INSTEAD OF SIX FROM AN UNSPECIFIED DATE, THEN SWITCHED TO TWICE A DAY
  2. SULFASALAZINE. [Suspect]
     Active Substance: SULFASALAZINE
     Indication: RHEUMATOID ARTHRITIS
     Dosage: 3 TABLETS IN THE MORNING AND 3 AT NIGHT BY MOUTH
     Route: 048
     Dates: start: 202104

REACTIONS (4)
  - Musculoskeletal stiffness [Unknown]
  - Abdominal discomfort [Unknown]
  - Condition aggravated [Unknown]
  - Intentional product misuse [Unknown]
